FAERS Safety Report 10747673 (Version 1)
Quarter: 2015Q1

REPORT INFORMATION
  Report Type: Spontaneous
  Country: US (occurrence: US)
  Receive Date: 20150129
  Receipt Date: 20150129
  Transmission Date: 20150721
  Serious: No
  Sender: FDA-Public Use
  Company Number: US-AMGEN-USASP2015007146

PATIENT
  Age: 51 Year
  Sex: Female

DRUGS (1)
  1. ENBREL [Suspect]
     Active Substance: ETANERCEPT
     Indication: ANKYLOSING SPONDYLITIS
     Dosage: 50 MG, QWK
     Route: 065
     Dates: start: 20141215, end: 20150105

REACTIONS (9)
  - Stomatitis [Recovered/Resolved]
  - Pain [Not Recovered/Not Resolved]
  - Papule [Recovered/Resolved]
  - Fatigue [Not Recovered/Not Resolved]
  - Erythema [Recovered/Resolved]
  - Injection site rash [Recovered/Resolved]
  - Nasal ulcer [Recovered/Resolved]
  - Headache [Recovered/Resolved]
  - Feeling hot [Recovered/Resolved]

NARRATIVE: CASE EVENT DATE: 201412
